FAERS Safety Report 5278759-3 (Version None)
Quarter: 2007Q1

REPORT INFORMATION
  Report Type: 
  Country: None (occurrence: None)
  Receive Date: 20070321
  Receipt Date: 20070228
  Transmission Date: 20070707
  Serious: Yes (Other)
  Sender: FDA-Public Use
  Company Number: 2007SP003938

PATIENT
  Age: 40 Year
  Sex: 0

DRUGS (1)
  1. CLARITIN [Suspect]
     Indication: RHINITIS ALLERGIC
     Dosage: 10 MG; PO
     Route: 048

REACTIONS (2)
  - GAIT DISTURBANCE [None]
  - MUSCLE ATROPHY [None]
